FAERS Safety Report 6453058-2 (Version None)
Quarter: 2009Q4

REPORT INFORMATION
  Report Type: 
  Country: None (occurrence: None)
  Receive Date: 20091117
  Receipt Date: 20091103
  Transmission Date: 20100525
  Serious: Yes (Other)
  Sender: FDA-Public Use
  Company Number: 1000009949

PATIENT
  Age: 82 Year
  Sex: Female

DRUGS (5)
  1. NEBIVOLOL HCL [Suspect]
     Dosage: 5 MG (5 MG, 1 IN1 D),ORAL
     Route: 048
     Dates: start: 20090401
  2. APROVEL [Suspect]
     Dates: start: 20090401, end: 20091009
  3. CORTANCYL [Concomitant]
  4. LEVOTHYROXINE SODIUM [Concomitant]
  5. IMUREL [Concomitant]

REACTIONS (2)
  - DERMATITIS BULLOUS [None]
  - PRURITUS [None]
